FAERS Safety Report 4922849-9 (Version None)
Quarter: 2006Q1

REPORT INFORMATION
  Report Type: 
  Country: None (occurrence: None)
  Receive Date: 20060224
  Receipt Date: 20051001
  Transmission Date: 20060701
  Serious: Yes (Hospitalization, Disabling, Other)
  Sender: FDA-Public Use
  Company Number: PR-MERCK-0510USA01818

PATIENT
  Age: 49 Year
  Sex: Male
  Weight: 86 kg

DRUGS (3)
  1. VIOXX [Suspect]
     Indication: LIGAMENT SPRAIN
     Route: 048
     Dates: start: 20010521, end: 20020626
  2. SKELAXIN [Concomitant]
     Route: 065
  3. TORADOL [Concomitant]
     Route: 030

REACTIONS (15)
  - ANGINA PECTORIS [None]
  - ANGIOPATHY [None]
  - ANXIETY DISORDER [None]
  - ARRHYTHMIA [None]
  - BACK INJURY [None]
  - CARDIOVASCULAR DISORDER [None]
  - CEREBROVASCULAR ACCIDENT [None]
  - DEPRESSION [None]
  - EMOTIONAL DISORDER [None]
  - MYOCARDIAL INFARCTION [None]
  - NEPHROLITHIASIS [None]
  - ORGAN FAILURE [None]
  - PULMONARY EMBOLISM [None]
  - SUBARACHNOID HAEMORRHAGE [None]
  - THROMBOSIS [None]
